FAERS Safety Report 16222873 (Version 1)
Quarter: 2019Q2

REPORT INFORMATION
  Report Type: Spontaneous
  Country: US (occurrence: US)
  Receive Date: 20190419
  Receipt Date: 20190419
  Transmission Date: 20190711
  Serious: Yes (Other)
  Sender: FDA-Public Use
  Company Number: None

PATIENT
  Age: 42 Year
  Sex: Female
  Weight: 51.3 kg

DRUGS (2)
  1. CENTRUM MULTI-VITAMIN FOR WOMEN [Concomitant]
  2. OSELTAMIVIR PHOS 75 MG [Suspect]
     Active Substance: OSELTAMIVIR PHOSPHATE
     Indication: INFLUENZA
     Dosage: ?          QUANTITY:10 CAPSULE(S);?
     Route: 048
     Dates: start: 20190416, end: 20190419

REACTIONS (6)
  - Anger [None]
  - Diarrhoea [None]
  - Breast pain [None]
  - Insomnia [None]
  - Breast tenderness [None]
  - Blood pressure increased [None]

NARRATIVE: CASE EVENT DATE: 20190419
